FAERS Safety Report 4938811-6 (Version None)
Quarter: 2006Q1

REPORT INFORMATION
  Report Type: 
  Country: None (occurrence: None)
  Receive Date: 20060131
  Receipt Date: 20051212
  Transmission Date: 20060701
  Serious: No
  Sender: FDA-Public Use
  Company Number: 200520448US

PATIENT
  Age: 70 Year
  Sex: Male

DRUGS (1)
  1. KETEK [Suspect]
     Dosage: 800 MG BID PO
     Route: 048

REACTIONS (1)
  - PRURITUS [None]
